FAERS Safety Report 17448118 (Version 4)
Quarter: 2020Q4

REPORT INFORMATION
  Report Type: Report from Study
  Country: US (occurrence: US)
  Receive Date: 20200222
  Receipt Date: 20201024
  Transmission Date: 20210113
  Serious: No
  Sender: FDA-Public Use
  Company Number: NVSC2020US049184

PATIENT
  Sex: Male

DRUGS (2)
  1. MAYZENT [Suspect]
     Active Substance: SIPONIMOD
     Indication: MULTIPLE SCLEROSIS
     Dosage: 2 MG, QD
     Route: 048
     Dates: start: 201912
  2. MAYZENT [Suspect]
     Active Substance: SIPONIMOD
     Dosage: UNK UNK, UNKNOWN
     Route: 065

REACTIONS (6)
  - Headache [Recovered/Resolved]
  - Illness [Recovered/Resolved]
  - Gait disturbance [Recovered/Resolved]
  - Mobility decreased [Unknown]
  - Fall [Unknown]
  - Nasopharyngitis [Recovered/Resolved]
